FAERS Safety Report 23780856 (Version 1)
Quarter: 2024Q2

REPORT INFORMATION
  Report Type: Spontaneous
  Country: PL (occurrence: PL)
  Receive Date: 20240425
  Receipt Date: 20240425
  Transmission Date: 20240715
  Serious: Yes (Death, Hospitalization, Other)
  Sender: FDA-Public Use
  Company Number: PL-SUN PHARMACEUTICAL INDUSTRIES LTD-2024R1-443434

PATIENT
  Age: 57 Year
  Sex: Female

DRUGS (2)
  1. LITHIUM [Suspect]
     Active Substance: LITHIUM
     Indication: Bipolar disorder
     Dosage: UNK (0.25 G, FOUR TABLETS PER DAY)
     Route: 065
  2. CLOMIPRAMINE [Concomitant]
     Active Substance: CLOMIPRAMINE
     Indication: Product used for unknown indication
     Dosage: UNK (75 MG -1 TABLET PER DAY)
     Route: 065

REACTIONS (8)
  - Accidental overdose [Fatal]
  - Cardiopulmonary failure [Fatal]
  - Renal failure [Fatal]
  - Ventricular arrhythmia [Fatal]
  - Acute hepatic failure [Fatal]
  - Pneumonia [Fatal]
  - Electrolyte imbalance [Fatal]
  - Toxicity to various agents [Fatal]
